FAERS Safety Report 4592765-3 (Version None)
Quarter: 2005Q1

REPORT INFORMATION
  Report Type: 
  Country: None (occurrence: None)
  Receive Date: 20050222
  Receipt Date: 20050204
  Transmission Date: 20050727
  Serious: No
  Sender: FDA-Public Use
  Company Number: 10190

PATIENT
  Age: 71 Year
  Sex: Male

DRUGS (2)
  1. CYTARABINE [Suspect]
     Indication: ACUTE MYELOID LEUKAEMIA
     Dosage: 100 MG/ML
     Route: 042
     Dates: start: 20041112, end: 20041119
  2. DAUNORUBICIN HCL [Concomitant]

REACTIONS (2)
  - HEPATOMEGALY [None]
  - LIVER FUNCTION TEST ABNORMAL [None]
